FAERS Safety Report 16342804 (Version 2)
Quarter: 2019Q2

REPORT INFORMATION
  Report Type: Report from Study
  Country: NL (occurrence: NL)
  Receive Date: 20190522
  Receipt Date: 20190607
  Transmission Date: 20190711
  Serious: Yes (Death, Hospitalization)
  Sender: FDA-Public Use
  Company Number: NL-MYLANLABS-2019M1047016

PATIENT

DRUGS (5)
  1. FLUOROURACIL. [Suspect]
     Active Substance: FLUOROURACIL
     Indication: COLORECTAL CANCER
     Dosage: DATE OF LAST DOSE : 18/MAY/2018
     Route: 065
     Dates: start: 20180517, end: 20180518
  2. OXALIPLATIN. [Suspect]
     Active Substance: OXALIPLATIN
     Indication: COLORECTAL CANCER
     Dosage: DATE OF LAST DOSE : 17/MAY/2018
     Route: 065
     Dates: start: 20180517, end: 20180517
  3. LEUCOVORIN                         /00566702/ [Suspect]
     Active Substance: LEUCOVORIN
     Indication: COLORECTAL CANCER
     Dosage: DATE OF LAST DOSE : 17/MAY/2018
     Route: 065
     Dates: start: 20180517, end: 20180517
  4. IRINOTECAN [Suspect]
     Active Substance: IRINOTECAN
     Indication: COLORECTAL CANCER
     Dosage: DATE OF LAST DOSE : 17/MAY/2018
     Route: 065
     Dates: start: 20180517, end: 20180517
  5. BEVACIZUMAB. [Suspect]
     Active Substance: BEVACIZUMAB
     Indication: COLORECTAL CANCER
     Dosage: DATE OF LAST DOSE : 17/MAY/2018
     Route: 065
     Dates: start: 20180517, end: 20180517

REACTIONS (4)
  - Diarrhoea [Recovered/Resolved]
  - Ileus [Recovered/Resolved]
  - Sepsis [Fatal]
  - Anaemia [Recovered/Resolved]

NARRATIVE: CASE EVENT DATE: 20180524
